FAERS Safety Report 6463090-0 (Version None)
Quarter: 2009Q4

REPORT INFORMATION
  Report Type: 
  Country: None (occurrence: None)
  Receive Date: 20091124
  Receipt Date: 20091111
  Transmission Date: 20100525
  Serious: Yes (Other)
  Sender: FDA-Public Use
  Company Number: 235015K09USA

PATIENT
  Age: 27 Year
  Sex: Female
  Weight: 125 kg

DRUGS (15)
  1. REBIF [Suspect]
     Indication: MULTIPLE SCLEROSIS
     Dosage: 44 MCG, 3 IN 1 WEEKS, SUBCUTANEOUS
     Route: 058
     Dates: start: 20090304
  2. BACLOFEN [Concomitant]
  3. TYLENOL [Concomitant]
  4. ALEVE [Concomitant]
  5. IBUPROFEN [Concomitant]
  6. ALTACE [Concomitant]
  7. PLENDIL [Concomitant]
  8. ZOCOR [Concomitant]
  9. TRICOR [Concomitant]
  10. ALLEGRA [Concomitant]
  11. LYRICA [Concomitant]
  12. PAXIL [Concomitant]
  13. YAZ (ORAL CONTRACEPTATIVE NOS) [Concomitant]
  14. OMEPRAZOLE [Concomitant]
  15. STEROIDS (CORTICOSTEROIDS) [Concomitant]

REACTIONS (3)
  - GALLBLADDER NON-FUNCTIONING [None]
  - GASTRIC POLYPS [None]
  - HEPATIC STEATOSIS [None]
